FAERS Safety Report 7069118 (Version 2)
Quarter: 2014Q3

REPORT INFORMATION
  Report Type: Spontaneous
  Country: US (occurrence: None)
  Receive Date: 20090724
  Receipt Date: 20140918
  Transmission Date: 20150326
  Serious: No
  Sender: FDA-Public Use
  Company Number: 2009S1005514

PATIENT
  Age: 58 Year
  Sex: Male

DRUGS (4)
  1. METOPROLOL [Concomitant]
     Active Substance: METOPROLOL
  2. PHOSPHO-SODA [Suspect]
     Active Substance: SODIUM PHOSPHATE, DIBASIC\SODIUM PHOSPHATE, MONOBASIC
     Indication: PRODUCT USED FOR UNKNOWN INDICATION
     Route: 048
     Dates: start: 200611, end: 200611
  3. INSULIN [Concomitant]
     Active Substance: INSULIN NOS
  4. ENALAPRIL [Concomitant]
     Active Substance: ENALAPRIL

REACTIONS (3)
  - Blood creatinine increased [None]
  - Renal impairment [None]
  - Diabetic nephropathy [None]
